FAERS Safety Report 7336377-7 (Version None)
Quarter: 2011Q1

REPORT INFORMATION
  Report Type: 
  Country: None (occurrence: None)
  Receive Date: 20110307
  Receipt Date: 20110302
  Transmission Date: 20110831
  Serious: Yes (Hospitalization, Other)
  Sender: FDA-Public Use
  Company Number: US-PFIZER INC-2010152295

PATIENT
  Sex: Male

DRUGS (2)
  1. CHANTIX [Suspect]
     Indication: SMOKING CESSATION THERAPY
     Dosage: STARTING PACK AND 1MG CONTINUING MONTH PACK
     Dates: start: 20071004, end: 20071018
  2. CHANTIX [Suspect]
     Dosage: UNK
     Dates: start: 20071102

REACTIONS (16)
  - DEPRESSION [None]
  - TREMOR [None]
  - ANXIETY [None]
  - VISUAL IMPAIRMENT [None]
  - PANIC ATTACK [None]
  - HYPOVENTILATION [None]
  - INTENTIONAL OVERDOSE [None]
  - CHEST PAIN [None]
  - NIGHTMARE [None]
  - IRRITABILITY [None]
  - SOCIAL AVOIDANT BEHAVIOUR [None]
  - AGGRESSION [None]
  - MOOD SWINGS [None]
  - INSOMNIA [None]
  - SUICIDE ATTEMPT [None]
  - AMNESIA [None]
